FAERS Safety Report 22115598 (Version 5)
Quarter: 2023Q2

REPORT INFORMATION
  Report Type: Spontaneous
  Country: JP (occurrence: JP)
  Receive Date: 20230320
  Receipt Date: 20230529
  Transmission Date: 20230722
  Serious: Yes (Other)
  Sender: FDA-Public Use
  Company Number: JP-002147023-NVSJ2023JP004876

PATIENT
  Weight: 2.472 kg

DRUGS (8)
  1. NEORAL [Suspect]
     Active Substance: CYCLOSPORINE
     Indication: Foetal exposure during pregnancy
     Dosage: MATERNAL EXPOSURE DURING PREGNANCY:100 MG
     Route: 064
  2. NEORAL [Suspect]
     Active Substance: CYCLOSPORINE
     Dosage: MATERNAL EXPOSURE DURING PREGNANCY:125 MG
     Route: 064
  3. NEORAL [Suspect]
     Active Substance: CYCLOSPORINE
     Dosage: MATERNAL EXPOSURE DURING PREGNANCY:150 MG
     Route: 064
  4. NEORAL [Suspect]
     Active Substance: CYCLOSPORINE
     Dosage: MATERNAL EXPOSURE DURING PREGNANCY: 200 MG
     Route: 064
  5. NEORAL [Suspect]
     Active Substance: CYCLOSPORINE
     Dosage: MATERNAL EXPOSURE DURING PREGNANCY: 100 MG
     Route: 064
  6. NEORAL [Suspect]
     Active Substance: CYCLOSPORINE
     Dosage: UNK
     Route: 064
  7. IMURAN [Suspect]
     Active Substance: AZATHIOPRINE
     Indication: Foetal exposure during pregnancy
     Dosage: MATERNAL EXPOSURE DURING PREGNANCY: 50 MG
     Route: 064
  8. METHYLPREDNISOLONE [Suspect]
     Active Substance: METHYLPREDNISOLONE
     Indication: Foetal exposure during pregnancy
     Dosage: UNK
     Route: 064

REACTIONS (3)
  - Premature baby [Unknown]
  - Low birth weight baby [Unknown]
  - Foetal exposure during pregnancy [Unknown]
